FAERS Safety Report 22174126 (Version 1)
Quarter: 2023Q2

REPORT INFORMATION
  Report Type: Report from Study
  Country: US (occurrence: US)
  Receive Date: 20230405
  Receipt Date: 20230405
  Transmission Date: 20230721
  Serious: Yes (Other)
  Sender: FDA-Public Use
  Company Number: US-ABBVIE-4715529

PATIENT
  Sex: Female

DRUGS (1)
  1. VENCLEXTA [Suspect]
     Active Substance: VENETOCLAX
     Indication: Acute myelomonocytic leukaemia
     Dosage: DOSE: 200MG, TAKE 2 TABLETS (200 MG) DAILY ON DAY 1-14 OF CHEMO CYCLE
     Route: 048

REACTIONS (3)
  - Atrial fibrillation [Unknown]
  - Anaemia [Unknown]
  - Asthenia [Unknown]
